FAERS Safety Report 19816569 (Version 1)
Quarter: 2021Q3

REPORT INFORMATION
  Report Type: Spontaneous
  Country: US (occurrence: US)
  Receive Date: 20210910
  Receipt Date: 20210910
  Transmission Date: 20211014
  Serious: No
  Sender: FDA-Public Use
  Company Number: US-SA-2021SA292859

PATIENT
  Age: 59 Year
  Sex: Male

DRUGS (8)
  1. FELODIPINE. [Concomitant]
     Active Substance: FELODIPINE
     Indication: HYPERTENSION
  2. FOLIC ACID. [Concomitant]
     Active Substance: FOLIC ACID
  3. DUPIXENT [Suspect]
     Active Substance: DUPILUMAB
     Indication: ECZEMA
  4. DUPIXENT [Suspect]
     Active Substance: DUPILUMAB
     Indication: DERMATITIS ATOPIC
     Dosage: 600 MG, 1X
     Route: 058
     Dates: start: 20210813, end: 20210813
  5. IRBESARTAN. [Concomitant]
     Active Substance: IRBESARTAN
     Indication: HYPERTENSION
  6. APAP [Concomitant]
     Active Substance: ACETAMINOPHEN
  7. PERMETHRIN. [Concomitant]
     Active Substance: PERMETHRIN
  8. METHOTREXATE. [Concomitant]
     Active Substance: METHOTREXATE

REACTIONS (1)
  - Dry eye [Not Recovered/Not Resolved]

NARRATIVE: CASE EVENT DATE: 20210831
